FAERS Safety Report 7203185-7 (Version None)
Quarter: 2010Q4

REPORT INFORMATION
  Report Type: 
  Country: None (occurrence: None)
  Receive Date: 20101230
  Receipt Date: 20101220
  Transmission Date: 20110411
  Serious: Yes (Hospitalization, Other)
  Sender: FDA-Public Use
  Company Number: DE-BIOGENIDEC-2010BI044396

PATIENT
  Age: 54 Year
  Sex: Female
  Weight: 70 kg

DRUGS (2)
  1. TYSABRI [Suspect]
     Indication: MULTIPLE SCLEROSIS
     Route: 042
     Dates: start: 20070430, end: 20081114
  2. MITOXANTRONE [Concomitant]
     Indication: MULTIPLE SCLEROSIS
     Route: 042
     Dates: start: 20090407, end: 20100107

REACTIONS (1)
  - BREAST CANCER [None]
